FAERS Safety Report 7611129-9 (Version None)
Quarter: 2011Q3

REPORT INFORMATION
  Report Type: 
  Country: None (occurrence: None)
  Receive Date: 20110715
  Receipt Date: 20110708
  Transmission Date: 20111222
  Serious: Yes (Hospitalization)
  Sender: FDA-Public Use
  Company Number: US-NOVOPROD-331681

PATIENT
  Age: 72 Year
  Sex: Female
  Weight: 55.329 kg

DRUGS (1)
  1. NOVOLOG [Suspect]
     Indication: TYPE 2 DIABETES MELLITUS
     Dosage: 3 U AT LUNCH, 4 U AT SUPPER
     Route: 058
     Dates: start: 20110201

REACTIONS (8)
  - LOSS OF CONSCIOUSNESS [None]
  - DYSPNOEA [None]
  - EXPIRED DRUG ADMINISTERED [None]
  - PARAESTHESIA ORAL [None]
  - ERYTHEMA [None]
  - DIZZINESS [None]
  - ASTHENIA [None]
  - PARAESTHESIA [None]
